FAERS Safety Report 17496730 (Version 2)
Quarter: 2020Q1

REPORT INFORMATION
  Report Type: Spontaneous
  Country: US (occurrence: US)
  Receive Date: 20200304
  Receipt Date: 20200306
  Transmission Date: 20200409
  Serious: No
  Sender: FDA-Public Use
  Company Number: US-SA-2020SA053090

PATIENT
  Age: 75 Year
  Sex: Female

DRUGS (2)
  1. PRALUENT [Suspect]
     Active Substance: ALIROCUMAB
     Indication: BLOOD CHOLESTEROL ABNORMAL
     Dosage: 75 MG, QOW
     Route: 058
     Dates: start: 20200115
  2. PRALUENT [Suspect]
     Active Substance: ALIROCUMAB
     Indication: HYPERCHOLESTEROLAEMIA

REACTIONS (3)
  - Product administered at inappropriate site [Unknown]
  - Wrong technique in device usage process [Unknown]
  - Injury associated with device [Unknown]

NARRATIVE: CASE EVENT DATE: 20200226
